FAERS Safety Report 8773986 (Version 1)
Quarter: 2012Q4

REPORT INFORMATION
  Report Type: 
  Country: US (occurrence: US)
  Receive Date: 20120907
  Receipt Date: 20120907
  Transmission Date: 20130627
  Serious: No
  Sender: FDA-Public Use
  Company Number: US-PFIZER INC-2012217943

PATIENT
  Age: 66 Year
  Sex: Male
  Weight: 93.9 kg

DRUGS (20)
  1. ZOLOFT [Suspect]
     Indication: ANXIETY
     Dosage: 100 mg, 1x/day
     Route: 048
  2. LIPITOR [Suspect]
     Indication: BLOOD TRIGLYCERIDES INCREASED
     Dosage: 80 mg, 1x/day
     Route: 048
  3. PROGRAF [Concomitant]
     Dosage: UNK
  4. CELLCEPT [Concomitant]
     Dosage: UNK
  5. PREDNISONE [Concomitant]
     Dosage: UNK
  6. ASPIRIN [Concomitant]
     Dosage: UNK
  7. CALCIUM CARBONATE/ERGOCALCIFEROL [Concomitant]
     Dosage: UNK
  8. COREG [Concomitant]
     Dosage: UNK
  9. NEXIUM [Concomitant]
     Dosage: UNK
  10. FERROUS SULPHATE [Concomitant]
     Dosage: UNK
  11. SYNTHROID [Concomitant]
     Dosage: UNK
  12. CARDIZEM [Concomitant]
     Dosage: UNK
  13. MAGNESIUM OXIDE [Concomitant]
     Dosage: UNK
  14. OMEGA-3 [Concomitant]
     Dosage: UNK
  15. PLAVIX [Concomitant]
     Dosage: UNK
  16. RAPAMUNE [Concomitant]
     Dosage: UNK
  17. POTASSIUM [Concomitant]
     Dosage: UNK
  18. BACTRIM [Concomitant]
     Dosage: UNK
  19. ISOSORBIDE [Concomitant]
     Dosage: UNK
  20. AMLODIPINE [Concomitant]
     Indication: HYPERTENSION
     Dosage: UNK

REACTIONS (3)
  - Anxiety [Not Recovered/Not Resolved]
  - Blood triglycerides increased [Unknown]
  - Insomnia [Not Recovered/Not Resolved]
